FAERS Safety Report 23722320 (Version 1)
Quarter: 2024Q2

REPORT INFORMATION
  Report Type: Spontaneous
  Country: US (occurrence: None)
  Receive Date: 20240408
  Receipt Date: 20240408
  Transmission Date: 20240716
  Serious: No
  Sender: FDA-Public Use
  Company Number: None

PATIENT
  Age: 57 Year
  Sex: Male
  Weight: 69.3 kg

DRUGS (8)
  1. XTANDI [Suspect]
     Active Substance: ENZALUTAMIDE
     Indication: Prostate cancer
     Dosage: 160 MG DAILY ORAL ?
     Route: 048
     Dates: start: 20231018
  2. HYDROXYZINE [Concomitant]
     Active Substance: HYDROXYZINE HYDROCHLORIDE
     Dates: start: 20231017
  3. ALBUTEROL SULFATE [Concomitant]
     Active Substance: ALBUTEROL SULFATE
     Dates: start: 20231017
  4. BACLOFEN [Concomitant]
     Active Substance: BACLOFEN
  5. GABAPENTIN [Concomitant]
     Active Substance: GABAPENTIN
  6. NORCO [Concomitant]
     Active Substance: ACETAMINOPHEN\HYDROCODONE BITARTRATE
  7. OMEPRAZOLE [Concomitant]
     Active Substance: OMEPRAZOLE
  8. MORPHINE SULFATE [Concomitant]
     Active Substance: MORPHINE SULFATE

REACTIONS (7)
  - Dyspnoea [None]
  - Dizziness [None]
  - Constipation [None]
  - Back pain [None]
  - Hot flush [None]
  - Amnesia [None]
  - Photosensitivity reaction [None]

NARRATIVE: CASE EVENT DATE: 20240408
